FAERS Safety Report 9399496 (Version 1)
Quarter: 2013Q3

REPORT INFORMATION
  Report Type: Spontaneous
  Country: GB (occurrence: GB)
  Receive Date: 20130715
  Receipt Date: 20130715
  Transmission Date: 20140515
  Serious: Yes (Hospitalization, Other)
  Sender: FDA-Public Use
  Company Number: GB-JNJFOC-20130705187

PATIENT
  Age: 81 Year
  Sex: Female
  Weight: 75.6 kg

DRUGS (9)
  1. XARELTO [Suspect]
     Indication: CEREBROVASCULAR ACCIDENT PROPHYLAXIS
     Route: 048
     Dates: start: 20130328, end: 20130606
  2. XARELTO [Suspect]
     Indication: ATRIAL FIBRILLATION
     Route: 048
     Dates: start: 20130328, end: 20130606
  3. ALLOPURINOL [Concomitant]
     Route: 065
  4. PAROXETINE [Concomitant]
     Route: 065
  5. BUMETANIDE [Concomitant]
     Route: 065
  6. DIGOXIN [Concomitant]
     Route: 065
  7. MEBEVERINE [Concomitant]
     Route: 065
  8. ADCAL D3 [Concomitant]
     Route: 065
  9. BISOPROLOL [Concomitant]
     Route: 065

REACTIONS (5)
  - Hepatic failure [Not Recovered/Not Resolved]
  - Hypoglycaemia [Not Recovered/Not Resolved]
  - Abdominal pain upper [Not Recovered/Not Resolved]
  - Acidosis [Not Recovered/Not Resolved]
  - Nausea [Not Recovered/Not Resolved]
